FAERS Safety Report 6463678-7 (Version None)
Quarter: 2009Q4

REPORT INFORMATION
  Report Type: 
  Country: None (occurrence: None)
  Receive Date: 20091201
  Receipt Date: 20091123
  Transmission Date: 20100525
  Serious: Yes (Hospitalization)
  Sender: FDA-Public Use
  Company Number: PHEH2009US16047

PATIENT
  Sex: Female
  Weight: 19.1 kg

DRUGS (6)
  1. EXJADE [Suspect]
     Indication: HAEMOCHROMATOSIS
     Dosage: 2000 MG DAILY
     Route: 048
     Dates: start: 20080908, end: 20090301
  2. EXJADE [Suspect]
     Indication: IRON METABOLISM DISORDER
  3. GABAPENTIN [Concomitant]
     Indication: FIBROMYALGIA
     Dosage: 600 MG, UNK
     Route: 048
  4. COLCHICINE [Concomitant]
     Indication: ARTHRALGIA
     Dosage: 0.6 MG, UNK
     Route: 048
     Dates: start: 20081016
  5. AMRIX [Concomitant]
     Indication: FIBROMYALGIA
     Dosage: 10 MG, UNK
     Route: 048
     Dates: start: 20080905
  6. DARVOCET-N 100 [Concomitant]
     Indication: ARTHRALGIA
     Dosage: 1-2 TABS PRN
     Route: 048
     Dates: start: 20080905

REACTIONS (3)
  - ARTHRALGIA [None]
  - SPINAL OSTEOARTHRITIS [None]
  - SURGERY [None]
